FAERS Safety Report 16761234 (Version 1)
Quarter: 2019Q3

REPORT INFORMATION
  Report Type: Spontaneous
  Country: US (occurrence: US)
  Receive Date: 20190830
  Receipt Date: 20190830
  Transmission Date: 20191005
  Serious: No
  Sender: FDA-Public Use
  Company Number: US-ANIPHARMA-2019-US-011508

PATIENT
  Age: 61 Year
  Sex: Female
  Weight: 102.06 kg

DRUGS (2)
  1. ENASIDENIB [Suspect]
     Active Substance: ENASIDENIB
  2. ARIMIDEX [Suspect]
     Active Substance: ANASTROZOLE
     Indication: BREAST CANCER
     Dosage: 1 MG DAY
     Route: 048
     Dates: start: 20190323

REACTIONS (3)
  - Condition aggravated [Not Recovered/Not Resolved]
  - Night sweats [Unknown]
  - Arthralgia [Not Recovered/Not Resolved]

NARRATIVE: CASE EVENT DATE: 20190326
